FAERS Safety Report 21058465 (Version 1)
Quarter: 2022Q3

REPORT INFORMATION
  Report Type: Spontaneous
  Country: US (occurrence: US)
  Receive Date: 20220708
  Receipt Date: 20220708
  Transmission Date: 20221027
  Serious: Yes (Other)
  Sender: FDA-Public Use
  Company Number: US-BAUSCH-BL-2022-017032

PATIENT
  Age: 80 Year
  Sex: Male
  Weight: 102.15 kg

DRUGS (2)
  1. VISUDYNE [Suspect]
     Active Substance: VERTEPORFIN
     Indication: Neovascular age-related macular degeneration
     Route: 047
  2. VISUDYNE [Suspect]
     Active Substance: VERTEPORFIN
     Indication: Choroidal neovascularisation

REACTIONS (1)
  - Eye haemorrhage [Unknown]
